FAERS Safety Report 11244436 (Version 1)
Quarter: 2015Q3

REPORT INFORMATION
  Report Type: Spontaneous
  Country: US (occurrence: None)
  Receive Date: 20150706
  Receipt Date: 20150706
  Transmission Date: 20151125
  Serious: No
  Sender: FDA-Public Use
  Company Number: None

PATIENT
  Age: 67 Year
  Sex: Female

DRUGS (1)
  1. ENBREL [Suspect]
     Active Substance: ETANERCEPT
     Indication: RHEUMATOID ARTHRITIS
     Dosage: 50MG, ONCE A WEEK, SUBCUTANEOUS
     Route: 058
     Dates: start: 20140916, end: 20150523

REACTIONS (2)
  - Onychoclasis [None]
  - Alopecia [None]
